FAERS Safety Report 5674880-6 (Version None)
Quarter: 2008Q1

REPORT INFORMATION
  Report Type: 
  Country: None (occurrence: None)
  Receive Date: 20080320
  Receipt Date: 20080318
  Transmission Date: 20080703
  Serious: Yes (Death, Life-Threatening)
  Sender: FDA-Public Use
  Company Number: FR-ASTRAZENECA-2008CG00431

PATIENT
  Age: 29932 Day
  Sex: Male
  Weight: 72 kg

DRUGS (4)
  1. TENORMIN [Suspect]
     Route: 048
  2. LOPRIL [Suspect]
     Route: 048
  3. LASILIX [Suspect]
     Route: 048
  4. NEXAVAR [Suspect]
     Indication: HEPATIC NEOPLASM MALIGNANT NON-RESECTABLE
     Route: 048
     Dates: start: 20080129

REACTIONS (3)
  - APHASIA [None]
  - DEATH [None]
  - MALAISE [None]
